FAERS Safety Report 7089757-1 (Version None)
Quarter: 2010Q4

REPORT INFORMATION
  Report Type: 
  Country: None (occurrence: None)
  Receive Date: 20101108
  Receipt Date: 20101005
  Transmission Date: 20110411
  Serious: No
  Sender: FDA-Public Use
  Company Number: US-ABBOTT-10P-163-0677104-00

PATIENT
  Sex: Male

DRUGS (2)
  1. TRICOR [Suspect]
     Indication: BLOOD TRIGLYCERIDES INCREASED
     Dates: end: 20100601
  2. LEVEMIR [Concomitant]
     Indication: TYPE 1 DIABETES MELLITUS

REACTIONS (1)
  - HIGH DENSITY LIPOPROTEIN DECREASED [None]
